FAERS Safety Report 16085567 (Version 2)
Quarter: 2019Q2

REPORT INFORMATION
  Report Type: Spontaneous
  Country: US (occurrence: US)
  Receive Date: 20190318
  Receipt Date: 20190425
  Transmission Date: 20190711
  Serious: Yes (Death, Other)
  Sender: FDA-Public Use
  Company Number: US-TAKEDA-2019TUS015023

PATIENT

DRUGS (1)
  1. PREVACID [Suspect]
     Active Substance: LANSOPRAZOLE
     Indication: DYSPEPSIA
     Dosage: UNK
     Route: 048
     Dates: start: 20050405, end: 20050505

REACTIONS (4)
  - Ventricular fibrillation [Fatal]
  - End stage renal disease [Fatal]
  - Coronary artery disease [Fatal]
  - Renal disorder [Fatal]

NARRATIVE: CASE EVENT DATE: 20060517
